FAERS Safety Report 12422969 (Version 1)
Quarter: 2016Q2

REPORT INFORMATION
  Report Type: Spontaneous
  Country: FR (occurrence: FR)
  Receive Date: 20160601
  Receipt Date: 20160601
  Transmission Date: 20160815
  Serious: Yes (Hospitalization)
  Sender: FDA-Public Use
  Company Number: FR-ASTRAZENECA-2016SE57006

PATIENT
  Age: 19223 Day
  Sex: Female

DRUGS (5)
  1. CEBUTID [Suspect]
     Active Substance: FLURBIPROFEN
     Indication: ARTHRALGIA
     Route: 048
     Dates: start: 20160324, end: 20160327
  2. SODIUM ALGINATE [Suspect]
     Active Substance: SODIUM ALGINATE
     Indication: GASTROOESOPHAGEAL REFLUX DISEASE
     Route: 048
     Dates: start: 2015, end: 20160411
  3. AMOXICILLINE [Suspect]
     Active Substance: AMOXICILLIN
     Dosage: 1 G, THREE TIMES A DAY
     Route: 048
     Dates: start: 20160408, end: 20160410
  4. INEXIUM [Suspect]
     Active Substance: ESOMEPRAZOLE
     Indication: GASTROOESOPHAGEAL REFLUX DISEASE
     Route: 048
     Dates: start: 2015, end: 20160411
  5. SODIUM BICARBONATE. [Suspect]
     Active Substance: SODIUM BICARBONATE
     Indication: GASTROOESOPHAGEAL REFLUX DISEASE
     Route: 048
     Dates: start: 2015, end: 20160411

REACTIONS (1)
  - Drug reaction with eosinophilia and systemic symptoms [Recovering/Resolving]

NARRATIVE: CASE EVENT DATE: 20160404
